FAERS Safety Report 6256027-0 (Version None)
Quarter: 2009Q2

REPORT INFORMATION
  Report Type: 
  Country: None (occurrence: None)
  Receive Date: 20090630
  Receipt Date: 20090630
  Transmission Date: 20091009
  Serious: Yes (Hospitalization)
  Sender: FDA-Public Use
  Company Number: None

PATIENT
  Age: 82 Year
  Sex: Female

DRUGS (2)
  1. SEPTRA DS [Suspect]
     Indication: CELLULITIS
     Dosage: 1 TABLET TWICE DAILY PO
     Route: 048
     Dates: start: 20090519, end: 20090519
  2. ZYVOX [Concomitant]

REACTIONS (1)
  - PRURITUS [None]
